FAERS Safety Report 24769034 (Version 1)
Quarter: 2024Q4

REPORT INFORMATION
  Report Type: Other
  Country: FR (occurrence: FR)
  Receive Date: 20241224
  Receipt Date: 20241224
  Transmission Date: 20250115
  Serious: Yes (Life-Threatening)
  Sender: ZYDUS PHARM
  Company Number: None

PATIENT

DRUGS (3)
  1. SPIRONOLACTONE [Interacting]
     Active Substance: SPIRONOLACTONE
     Indication: Hypertension
     Dosage: 25 MILLIGRAM, QD
     Route: 048
     Dates: end: 20241119
  2. METFORMIN [Interacting]
     Active Substance: METFORMIN HYDROCHLORIDE
     Indication: Type 2 diabetes mellitus
     Dosage: 1500 MILLIGRAM, QD
     Route: 048
     Dates: end: 20241119
  3. FUROSEMIDE [Interacting]
     Active Substance: FUROSEMIDE
     Indication: Hypertension
     Dosage: 20 MILLIGRAM, QD
     Route: 048
     Dates: end: 20241119

REACTIONS (3)
  - Drug level above therapeutic [Recovered/Resolved]
  - Lactic acidosis [Recovered/Resolved]
  - Drug interaction [Recovered/Resolved]

NARRATIVE: CASE EVENT DATE: 20241119
